FAERS Safety Report 22346882 (Version 1)
Quarter: 2023Q2

REPORT INFORMATION
  Report Type: Report from Study
  Country: EG (occurrence: EG)
  Receive Date: 20230520
  Receipt Date: 20230520
  Transmission Date: 20230721
  Serious: Yes (Hospitalization)
  Sender: FDA-Public Use
  Company Number: EG-AMGEN-EGYSL2023083718

PATIENT
  Age: 74 Year
  Sex: Female

DRUGS (1)
  1. VECTIBIX [Suspect]
     Active Substance: PANITUMUMAB
     Indication: Colorectal cancer
     Dosage: UNK UNK, QWK
     Route: 065

REACTIONS (3)
  - Skin disorder [Unknown]
  - Oral disorder [Unknown]
  - Off label use [Unknown]
